FAERS Safety Report 5609326-7 (Version None)
Quarter: 2008Q1

REPORT INFORMATION
  Report Type: 
  Country: None (occurrence: None)
  Receive Date: 20080131
  Receipt Date: 20080129
  Transmission Date: 20080703
  Serious: Yes (Other)
  Sender: FDA-Public Use
  Company Number: US-ASTRAZENECA-2008UW00449

PATIENT
  Age: 58 Year
  Sex: Female
  Weight: 88.6 kg

DRUGS (5)
  1. ARIMIDEX [Suspect]
     Indication: BREAST CANCER
     Route: 048
     Dates: start: 20070601
  2. LISINOPRIL [Concomitant]
  3. ETODOLAE [Concomitant]
  4. SERTRALINE [Concomitant]
  5. T4 [Concomitant]

REACTIONS (1)
  - FAILURE OF IMPLANT [None]
